FAERS Safety Report 8780056 (Version 2)
Quarter: 2012Q4

REPORT INFORMATION
  Report Type: 
  Country: US (occurrence: US)
  Receive Date: 20120912
  Receipt Date: 20121009
  Transmission Date: 20130627
  Serious: Yes (Other)
  Sender: FDA-Public Use
  Company Number: PHEH2012US017566

PATIENT
  Age: 79 Year
  Sex: Female
  Weight: 61.68 kg

DRUGS (5)
  1. DIOVAN [Suspect]
     Indication: HYPERTENSION
     Dosage: 80 mg, QD
     Route: 048
  2. METOPROLOL [Concomitant]
     Dosage: 25 mg, UNK
  3. BABY ASPIRIN [Concomitant]
  4. PLAVIX [Concomitant]
  5. LIPITOR [Concomitant]

REACTIONS (1)
  - Atrioventricular block [Recovered/Resolved]
